FAERS Safety Report 4815064-0 (Version None)
Quarter: 2005Q4

REPORT INFORMATION
  Report Type: 
  Country: None (occurrence: None)
  Receive Date: 20051026
  Receipt Date: 20051007
  Transmission Date: 20060501
  Serious: Yes (Hospitalization)
  Sender: FDA-Public Use
  Company Number: JP_051007806

PATIENT
  Age: 51 Year
  Sex: Male
  Weight: 76 kg

DRUGS (8)
  1. ZYPREXA [Suspect]
     Indication: SCHIZOPHRENIA
     Dosage: 10 MG DAY
     Route: 048
     Dates: start: 20040724, end: 20050108
  2. DEPAKENE [Concomitant]
  3. TEGRETOL [Concomitant]
  4. CLONAZEPAM [Concomitant]
  5. SILECE (FLUNITRAZEPAM) [Concomitant]
  6. VITAMIN A [Concomitant]
  7. LOCHOL (FLUVASTATIN SODIUM) [Concomitant]
  8. RISPERDAL [Concomitant]

REACTIONS (7)
  - ABNORMAL BEHAVIOUR [None]
  - AGGRESSION [None]
  - ANGER [None]
  - EXCITABILITY [None]
  - IRRITABILITY [None]
  - MOROSE [None]
  - NEGATIVISM [None]
